FAERS Safety Report 16326968 (Version 1)
Quarter: 2019Q2

REPORT INFORMATION
  Report Type: Spontaneous
  Country: US (occurrence: US)
  Receive Date: 20190517
  Receipt Date: 20190517
  Transmission Date: 20190711
  Serious: No
  Sender: FDA-Public Use
  Company Number: US-SA-2019SA129677

PATIENT
  Age: 55 Year
  Sex: Male

DRUGS (1)
  1. TOUJEO [Suspect]
     Active Substance: INSULIN GLARGINE
     Indication: DIABETES MELLITUS
     Dosage: UNK UNK, HS
     Route: 065

REACTIONS (3)
  - Exposure via skin contact [Unknown]
  - Circumstance or information capable of leading to medication error [Unknown]
  - Device operational issue [Unknown]
